FAERS Safety Report 24453223 (Version 2)
Quarter: 2024Q4

REPORT INFORMATION
  Report Type: Report from Study
  Country: US (occurrence: US)
  Receive Date: 20241017
  Receipt Date: 20241018
  Transmission Date: 20250115
  Serious: No
  Sender: ROCHE
  Company Number: US-ROCHE-3102725

PATIENT
  Age: 36 Year
  Sex: Male

DRUGS (4)
  1. RITUXAN [Suspect]
     Active Substance: RITUXIMAB
     Indication: Demyelination
     Dosage: PRESCRIBED 1000 MG DAY 1 AND DAY 15?DATE OF SERVICE :  05-04-2022, 11-04-2022)
     Route: 042
  2. RITUXAN [Suspect]
     Active Substance: RITUXIMAB
     Indication: Multiple sclerosis
  3. PREDNISONE [Concomitant]
     Active Substance: PREDNISONE
  4. RUXIENCE [Concomitant]
     Active Substance: RITUXIMAB-PVVR

REACTIONS (2)
  - Off label use [Unknown]
  - No adverse event [Unknown]
